FAERS Safety Report 5379940-5 (Version None)
Quarter: 2007Q3

REPORT INFORMATION
  Report Type: 
  Country: None (occurrence: None)
  Receive Date: 20070706
  Receipt Date: 20070625
  Transmission Date: 20080115
  Serious: Yes (Hospitalization, Other)
  Sender: FDA-Public Use
  Company Number: IR-NOVOPROD-265022

PATIENT
  Age: 63 Year
  Sex: Female
  Weight: 64.5 kg

DRUGS (5)
  1. NOVONORM [Suspect]
     Dosage: .5 MG, TID
     Dates: start: 20061122, end: 20070221
  2. METFORMIN HCL [Concomitant]
     Dosage: 1500 MG, QD
     Dates: start: 20050101
  3. CLOFIBRATE [Concomitant]
     Dosage: 500 MG, QD
     Dates: start: 20060101
  4. ATENOLOL [Concomitant]
     Dosage: 100 MG, QD
     Dates: start: 20050101
  5. GLICLAZIDA [Concomitant]
     Dosage: 80 MG, QD
     Route: 048

REACTIONS (1)
  - HYPOGLYCAEMIC UNCONSCIOUSNESS [None]
